FAERS Safety Report 4489099-4 (Version None)
Quarter: 2004Q4

REPORT INFORMATION
  Report Type: 
  Country: None (occurrence: None)
  Receive Date: 20041029
  Receipt Date: 20041019
  Transmission Date: 20050328
  Serious: Yes (Hospitalization)
  Sender: FDA-Public Use
  Company Number: BR-ROCHE-383801

PATIENT
  Age: 21 Year
  Sex: Female
  Weight: 49.8 kg

DRUGS (2)
  1. ROACUTAN [Suspect]
     Indication: ACNE
     Route: 048
     Dates: start: 20040715, end: 20040929
  2. SELENE [Suspect]
     Indication: CONTRACEPTION
     Route: 048
     Dates: start: 20040515, end: 20040929

REACTIONS (3)
  - DECREASED APPETITE [None]
  - DEEP VEIN THROMBOSIS [None]
  - WEIGHT DECREASED [None]
